FAERS Safety Report 12803633 (Version 1)
Quarter: 2016Q4

REPORT INFORMATION
  Report Type: Spontaneous
  Country: US (occurrence: US)
  Receive Date: 20161003
  Receipt Date: 20161003
  Transmission Date: 20170207
  Serious: No
  Sender: FDA-Public Use
  Company Number: US-BAYER-2016-190056

PATIENT
  Age: 81 Year
  Sex: Male
  Weight: 122.45 kg

DRUGS (2)
  1. ALEVE [Suspect]
     Active Substance: NAPROXEN SODIUM
     Indication: INFLAMMATION
     Dosage: 1 DF, QD
     Dates: start: 2016
  2. ALEVE [Suspect]
     Active Substance: NAPROXEN SODIUM
     Indication: ARTHRALGIA
     Dosage: 2 DF, QD
     Dates: start: 2016, end: 2016

REACTIONS (3)
  - Product use issue [None]
  - Off label use [None]
  - Circumstance or information capable of leading to medication error [None]
